FAERS Safety Report 11784204 (Version 2)
Quarter: 2015Q4

REPORT INFORMATION
  Report Type: Spontaneous
  Country: US (occurrence: US)
  Receive Date: 20151128
  Receipt Date: 20151128
  Transmission Date: 20160305
  Serious: Yes (Life-Threatening, Other)
  Sender: FDA-Public Use
  Company Number: US-RARE DISEASE THERAPEUTICS, INC.-1044736

PATIENT
  Age: 14 Year
  Sex: Male

DRUGS (4)
  1. METHOTREXATE (METHOTREXATE SODIUM) [Suspect]
     Active Substance: METHOTREXATE SODIUM
  2. VITAMIN K [Concomitant]
     Active Substance: PHYTONADIONE
  3. URSODIOL. [Concomitant]
     Active Substance: URSODIOL
  4. PURIXAN [Suspect]
     Active Substance: MERCAPTOPURINE
     Indication: ACUTE LYMPHOCYTIC LEUKAEMIA

REACTIONS (7)
  - Drug-induced liver injury [Recovering/Resolving]
  - Acute hepatic failure [Recovering/Resolving]
  - Abdominal pain [Unknown]
  - Alanine aminotransferase increased [Recovering/Resolving]
  - Prothrombin time prolonged [Unknown]
  - Hyperbilirubinaemia [Recovering/Resolving]
  - Neutrophil count [Not Recovered/Not Resolved]
